FAERS Safety Report 25039460 (Version 1)
Quarter: 2025Q1

REPORT INFORMATION
  Report Type: Spontaneous
  Country: US (occurrence: US)
  Receive Date: 20250305
  Receipt Date: 20250305
  Transmission Date: 20250409
  Serious: No
  Sender: DR REDDYS
  Company Number: US-DRL-USA-USA/2025/02/003194

PATIENT
  Age: 65 Year
  Sex: Male

DRUGS (8)
  1. RISPERIDONE [Suspect]
     Active Substance: RISPERIDONE
     Indication: Chorea
  2. RISPERIDONE [Suspect]
     Active Substance: RISPERIDONE
     Indication: Ballismus
  3. VALPROIC ACID [Suspect]
     Active Substance: VALPROIC ACID
     Indication: Chorea
  4. VALPROIC ACID [Suspect]
     Active Substance: VALPROIC ACID
     Indication: Ballismus
  5. HALOPERIDOL [Suspect]
     Active Substance: HALOPERIDOL
     Indication: Chorea
  6. HALOPERIDOL [Suspect]
     Active Substance: HALOPERIDOL
     Indication: Ballismus
  7. BACLOFEN [Suspect]
     Active Substance: BACLOFEN
     Indication: Chorea
  8. BACLOFEN [Suspect]
     Active Substance: BACLOFEN
     Indication: Ballismus

REACTIONS (2)
  - Sedation [Unknown]
  - Drug ineffective for unapproved indication [Unknown]
